FAERS Safety Report 25587074 (Version 1)
Quarter: 2025Q3

REPORT INFORMATION
  Report Type: Spontaneous
  Country: US (occurrence: US)
  Receive Date: 20250721
  Receipt Date: 20250721
  Transmission Date: 20251020
  Serious: No
  Sender: Phathom Pharmaceuticals
  Company Number: US-PHATHOM PHARMACEUTICALS INC.-2025PHT01088

PATIENT
  Sex: Male

DRUGS (6)
  1. VOQUEZNA [Suspect]
     Active Substance: VONOPRAZAN FUMARATE
     Dosage: 20 MG, 1X/DAY
     Route: 048
     Dates: start: 20250421
  2. DEXTROAMPHETAMINE SULFATE [Concomitant]
     Active Substance: DEXTROAMPHETAMINE SULFATE
  3. VALSARTAN [Concomitant]
     Active Substance: VALSARTAN
  4. ATORVASTATIN [Concomitant]
     Active Substance: ATORVASTATIN
  5. FAMOTIDINE [Concomitant]
     Active Substance: FAMOTIDINE
  6. FLOMAX [Concomitant]
     Active Substance: TAMSULOSIN HYDROCHLORIDE

REACTIONS (5)
  - Gastrointestinal disorder [Unknown]
  - Hypersensitivity [Unknown]
  - Abdominal pain upper [Unknown]
  - Insomnia [Unknown]
  - Nausea [Unknown]

NARRATIVE: CASE EVENT DATE: 20250101
